FAERS Safety Report 18063028 (Version 3)
Quarter: 2021Q1

REPORT INFORMATION
  Report Type: Report from Study
  Country: US (occurrence: US)
  Receive Date: 20200724
  Receipt Date: 20210201
  Transmission Date: 20210419
  Serious: Yes (Hospitalization, Other)
  Sender: FDA-Public Use
  Company Number: US-B.I. PHARMACEUTICALS,INC./RIDGEFIELD-2020-MR-036293

PATIENT
  Age: 60 Year
  Sex: Female
  Weight: 56 kg

DRUGS (2)
  1. OFEV [Suspect]
     Active Substance: NINTEDANIB
     Indication: SYSTEMIC SCLEROSIS PULMONARY
     Dosage: OFEV DOSE 300MG DAILY
     Route: 048
     Dates: start: 20200423
  2. OFEV [Suspect]
     Active Substance: NINTEDANIB
     Indication: IDIOPATHIC PULMONARY FIBROSIS

REACTIONS (7)
  - Diarrhoea [Unknown]
  - Diarrhoea [Unknown]
  - Body temperature decreased [Unknown]
  - Nausea [Unknown]
  - Epistaxis [Recovered/Resolved]
  - Scleroderma [Unknown]
  - Sinus disorder [Unknown]

NARRATIVE: CASE EVENT DATE: 2020
